FAERS Safety Report 25187401 (Version 1)
Quarter: 2025Q2

REPORT INFORMATION
  Report Type: Spontaneous
  Country: JP (occurrence: JP)
  Receive Date: 20250411
  Receipt Date: 20250411
  Transmission Date: 20250716
  Serious: Yes (Other)
  Sender: ACCORD
  Company Number: JP-Accord-478865

PATIENT
  Age: 67 Year
  Sex: Female
  Weight: 38.4 kg

DRUGS (3)
  1. ETOPOSIDE [Suspect]
     Active Substance: ETOPOSIDE
     Indication: Enteropathy-associated T-cell lymphoma
  2. PREDNISONE [Suspect]
     Active Substance: PREDNISONE
     Indication: Enteropathy-associated T-cell lymphoma
  3. SOBUZOXANE [Suspect]
     Active Substance: SOBUZOXANE
     Indication: Enteropathy-associated T-cell lymphoma

REACTIONS (1)
  - Intestinal obstruction [Unknown]
